FAERS Safety Report 10686732 (Version 1)
Quarter: 2015Q1

REPORT INFORMATION
  Report Type: Spontaneous
  Country: GB (occurrence: GB)
  Receive Date: 20150101
  Receipt Date: 20150101
  Transmission Date: 20150720
  Serious: Yes (Hospitalization)
  Sender: FDA-Public Use
  Company Number: PHHY2014GB169403

PATIENT
  Age: 69 Year
  Sex: Female

DRUGS (6)
  1. LEVOTHYROXINE [Concomitant]
     Active Substance: LEVOTHYROXINE
  2. ISPAGHULA EXTRACT\PSYLLIUM [Concomitant]
     Active Substance: PLANTAGO OVATA SEED\PLANTAGO SEED
  3. HYDROCORTISONE. [Concomitant]
     Active Substance: HYDROCORTISONE
     Dosage: 1 %, UNK
  4. NITROFURANTOIN. [Suspect]
     Active Substance: NITROFURANTOIN
     Indication: URINARY TRACT INFECTION
     Dosage: 50 MG, QD EVERY NIGHT.
     Route: 048
     Dates: start: 201408, end: 201411
  5. RAMIPRIL. [Concomitant]
     Active Substance: RAMIPRIL
  6. CLARITHROMYCIN. [Suspect]
     Active Substance: CLARITHROMYCIN
     Indication: LOWER RESPIRATORY TRACT INFECTION
     Dosage: 500 MG, BID
     Route: 048
     Dates: start: 2014, end: 201411

REACTIONS (5)
  - Pulmonary fibrosis [Recovered/Resolved with Sequelae]
  - Dyspnoea [Recovered/Resolved]
  - Liver function test abnormal [Recovering/Resolving]
  - Hepatic fibrosis [Recovered/Resolved with Sequelae]
  - Cough [Unknown]

NARRATIVE: CASE EVENT DATE: 201408
